FAERS Safety Report 16282050 (Version 1)
Quarter: 2019Q2

REPORT INFORMATION
  Report Type: Spontaneous
  Country: US (occurrence: US)
  Receive Date: 20190507
  Receipt Date: 20190507
  Transmission Date: 20190711
  Serious: Yes (Other)
  Sender: FDA-Public Use
  Company Number: US-GLAXOSMITHKLINE-US2019078080

PATIENT
  Age: 68 Year
  Sex: Female

DRUGS (2)
  1. NICODERM CQ [Suspect]
     Active Substance: NICOTINE
     Dosage: UNK UNK, QD
     Dates: start: 20190301, end: 20190327
  2. NICODERM CQ [Suspect]
     Active Substance: NICOTINE
     Indication: SMOKING CESSATION THERAPY
     Dosage: 21 MG, QD
     Route: 062
     Dates: start: 20190301, end: 20190327

REACTIONS (3)
  - Poisoning [Recovering/Resolving]
  - Overdose [Recovering/Resolving]
  - Nausea [Recovering/Resolving]
